FAERS Safety Report 11234950 (Version 2)
Quarter: 2015Q3

REPORT INFORMATION
  Report Type: Spontaneous
  Country: US (occurrence: US)
  Receive Date: 20150702
  Receipt Date: 20150713
  Transmission Date: 20151125
  Serious: No
  Sender: FDA-Public Use
  Company Number: US-TEVA-575061USA

PATIENT
  Age: 57 Year
  Sex: Male
  Weight: 95.34 kg

DRUGS (3)
  1. PROAIR HFA [Suspect]
     Active Substance: ALBUTEROL SULFATE
     Indication: COUGH
     Route: 055
     Dates: start: 20150624
  2. VICKS NYQUIL [Concomitant]
     Active Substance: ACETAMINOPHEN\DEXTROMETHORPHAN HYDROBROMIDE\DOXYLAMINE SUCCINATE
  3. ROBITUSSIN COUGH SYRUP [Concomitant]

REACTIONS (4)
  - Cough [Not Recovered/Not Resolved]
  - Abdominal pain upper [Unknown]
  - Throat irritation [Not Recovered/Not Resolved]
  - Dysphonia [Not Recovered/Not Resolved]

NARRATIVE: CASE EVENT DATE: 20150624
